FAERS Safety Report 20456166 (Version 2)
Quarter: 2022Q1

REPORT INFORMATION
  Report Type: Report from Study
  Country: JP (occurrence: JP)
  Receive Date: 20220210
  Receipt Date: 20220304
  Transmission Date: 20220423
  Serious: Yes (Hospitalization, Other)
  Sender: FDA-Public Use
  Company Number: JP-BRISTOL-MYERS SQUIBB COMPANY-BMS-2022-017245

PATIENT
  Age: 75 Year
  Sex: Male
  Weight: 49 kg

DRUGS (14)
  1. NIVOLUMAB [Suspect]
     Active Substance: NIVOLUMAB
     Indication: Non-small cell lung cancer
     Dosage: 86 MILLILITER
     Route: 065
     Dates: start: 20210708, end: 20210708
  2. PLACEBO [Suspect]
     Active Substance: UNSPECIFIED INGREDIENT
     Indication: Non-small cell lung cancer
     Dosage: 86 MILLILITER
     Route: 065
     Dates: start: 20210708, end: 20210708
  3. NIVOLUMAB [Suspect]
     Active Substance: NIVOLUMAB
     Dosage: 86 MILLILITER
     Route: 065
     Dates: start: 20210729, end: 20210729
  4. PLACEBO [Suspect]
     Active Substance: UNSPECIFIED INGREDIENT
     Dosage: 86 MILLILITER
     Route: 065
     Dates: start: 20210729, end: 20210729
  5. PACLITAXEL [Suspect]
     Active Substance: PACLITAXEL
     Indication: Non-small cell lung cancer
     Dosage: 296 MILLIGRAM
     Route: 065
     Dates: start: 20210708, end: 20210708
  6. PACLITAXEL [Suspect]
     Active Substance: PACLITAXEL
     Dosage: 296 MILLIGRAM
     Route: 065
     Dates: start: 20210729, end: 20210729
  7. CARBOPLATIN [Suspect]
     Active Substance: CARBOPLATIN
     Indication: Non-small cell lung cancer
     Dosage: 433 MILLIGRAM
     Route: 065
     Dates: start: 20210708, end: 20210708
  8. CARBOPLATIN [Suspect]
     Active Substance: CARBOPLATIN
     Dosage: 454 MILLIGRAM
     Route: 065
     Dates: start: 20210729, end: 20210729
  9. HEPARINOID [Concomitant]
     Indication: Product used for unknown indication
     Route: 065
     Dates: start: 20210719
  10. MIROGABALIN BESILATE [Concomitant]
     Indication: Product used for unknown indication
     Dosage: UNK
     Route: 065
     Dates: start: 20210719
  11. DIFLUCORTOLONE VALERATE [Concomitant]
     Active Substance: DIFLUCORTOLONE VALERATE
     Indication: Product used for unknown indication
     Dosage: UNK
     Route: 061
     Dates: start: 20210719
  12. RABEPRAZOLE [Concomitant]
     Active Substance: RABEPRAZOLE
     Indication: Prophylaxis
     Route: 065
     Dates: start: 20210812
  13. PREDNISOLONE [Concomitant]
     Active Substance: PREDNISOLONE
     Indication: Product used for unknown indication
     Dosage: 2.5 MILLIGRAM
     Route: 048
     Dates: start: 20220114
  14. BILASTINE [Concomitant]
     Active Substance: BILASTINE
     Indication: Product used for unknown indication
     Route: 065
     Dates: start: 20210719

REACTIONS (1)
  - Acute kidney injury [Recovered/Resolved]

NARRATIVE: CASE EVENT DATE: 20220203
